FAERS Safety Report 14128400 (Version 4)
Quarter: 2017Q4

REPORT INFORMATION
  Report Type: Spontaneous
  Country: IT (occurrence: IT)
  Receive Date: 20171026
  Receipt Date: 20171122
  Transmission Date: 20180321
  Serious: Yes (Other)
  Sender: FDA-Public Use
  Company Number: IT-ASTRAZENECA-2017SF07592

PATIENT
  Age: 27965 Day
  Sex: Male

DRUGS (5)
  1. FUROSEMIDE. [Concomitant]
     Active Substance: FUROSEMIDE
     Indication: CARDIOMYOPATHY
     Route: 040
  2. OMEPRAZOLE. [Suspect]
     Active Substance: OMEPRAZOLE
     Route: 048
  3. BISOPROLOL FUMARATE. [Concomitant]
     Active Substance: BISOPROLOL FUMARATE
     Indication: CARDIOMYOPATHY
     Route: 048
  4. ENOXAPARIN SODIUM. [Concomitant]
     Active Substance: ENOXAPARIN SODIUM
     Indication: THROMBOSIS PROPHYLAXIS
     Route: 058
  5. CITALOPRAM [Interacting]
     Active Substance: CITALOPRAM HYDROBROMIDE
     Indication: DEPRESSION
     Route: 048

REACTIONS (3)
  - Electrocardiogram QT prolonged [Recovering/Resolving]
  - Ventricular flutter [Recovered/Resolved]
  - Drug interaction [Recovering/Resolving]

NARRATIVE: CASE EVENT DATE: 20170820
